FAERS Safety Report 13353856 (Version 4)
Quarter: 2019Q4

REPORT INFORMATION
  Report Type: Spontaneous
  Country: US (occurrence: US)
  Receive Date: 20170321
  Receipt Date: 20191230
  Transmission Date: 20200122
  Serious: Yes (Other)
  Sender: FDA-Public Use
  Company Number: US-PFIZER INC-2017113590

PATIENT
  Age: 73 Year
  Sex: Female
  Weight: 91.63 kg

DRUGS (3)
  1. PREMARIN [Suspect]
     Active Substance: ESTROGENS, CONJUGATED
     Indication: POSTMENOPAUSE
     Dosage: 0.625 MG, UNK
     Route: 048
  2. PREMARIN [Suspect]
     Active Substance: ESTROGENS, CONJUGATED
     Indication: HORMONE REPLACEMENT THERAPY
     Dosage: 0.625 MG, 1X/DAY, (ONE EVERY EVENING)
     Route: 048
     Dates: start: 201605
  3. MEDROXYPROGESTERONE [Concomitant]
     Active Substance: MEDROXYPROGESTERONE
     Dosage: UNK

REACTIONS (4)
  - Blood pressure increased [Unknown]
  - Therapeutic response unexpected [Unknown]
  - Ear pain [Unknown]
  - Fall [Unknown]

NARRATIVE: CASE EVENT DATE: 201701
